FAERS Safety Report 9712994 (Version 1)
Quarter: 2013Q4

REPORT INFORMATION
  Report Type: Spontaneous
  Country: US (occurrence: US)
  Receive Date: 20131126
  Receipt Date: 20131126
  Transmission Date: 20140711
  Serious: No
  Sender: FDA-Public Use
  Company Number: US-BRISTOL-MYERS SQUIBB COMPANY-18964940

PATIENT
  Sex: Male

DRUGS (2)
  1. BYDUREON [Suspect]
     Indication: TYPE 2 DIABETES MELLITUS
     Dosage: DURATION OF THERAPY: 3 OR 4 MONTHS
  2. METFORMIN HCL [Suspect]
     Dosage: 1500MG IN THE MORNING AND 500MG AT NIGHT
     Route: 048

REACTIONS (1)
  - Blood glucose increased [Unknown]
